FAERS Safety Report 4651096-3 (Version None)
Quarter: 2005Q2

REPORT INFORMATION
  Report Type: 
  Country: None (occurrence: None)
  Receive Date: 20050503
  Receipt Date: 20050425
  Transmission Date: 20051028
  Serious: Yes (Hospitalization)
  Sender: FDA-Public Use
  Company Number: FR-ROCHE-402957

PATIENT
  Age: 8 Year
  Sex: Female
  Weight: 21 kg

DRUGS (3)
  1. CYMEVAN [Suspect]
     Indication: PROPHYLAXIS
     Dosage: FORMULATION REPORTED AS LYOPHILISED.
     Route: 042
     Dates: start: 20050220, end: 20050222
  2. SOLU-MEDROL [Suspect]
     Indication: DRUG USE FOR UNKNOWN INDICATION
     Dosage: FORMULATION REPORTED AS LYOPHILISED. STRENGTH REPORTED AS 20MG/2ML.
     Route: 042
     Dates: start: 20050205, end: 20050313
  3. AMBISOME [Suspect]
     Indication: PROPHYLAXIS
     Route: 042
     Dates: start: 20050220, end: 20050224

REACTIONS (1)
  - BRADYCARDIA [None]
